FAERS Safety Report 25407628 (Version 1)
Quarter: 2025Q2

REPORT INFORMATION
  Report Type: Spontaneous
  Country: LV (occurrence: LV)
  Receive Date: 20250606
  Receipt Date: 20250606
  Transmission Date: 20250717
  Serious: Yes (Death)
  Sender: BAYER HEALTHCARE PHARMACEUTICALS INC.
  Company Number: LV-BAYER-2025A072896

PATIENT
  Age: 65 Year
  Sex: Male

DRUGS (7)
  1. DAROLUTAMIDE [Suspect]
     Active Substance: DAROLUTAMIDE
     Indication: Hormone-dependent prostate cancer
     Dosage: 600 MG, BID
     Route: 048
     Dates: start: 20231117
  2. DOCETAXEL [Concomitant]
     Active Substance: DOCETAXEL
     Dates: start: 20231117
  3. DOCETAXEL [Concomitant]
     Active Substance: DOCETAXEL
  4. DOCETAXEL [Concomitant]
     Active Substance: DOCETAXEL
  5. DOCETAXEL [Concomitant]
     Active Substance: DOCETAXEL
  6. DOCETAXEL [Concomitant]
     Active Substance: DOCETAXEL
  7. DOCETAXEL [Concomitant]
     Active Substance: DOCETAXEL
     Dates: end: 20240527

REACTIONS (2)
  - Sepsis [Fatal]
  - Acute kidney injury [Fatal]
